FAERS Safety Report 18799269 (Version 1)
Quarter: 2021Q1

REPORT INFORMATION
  Report Type: Spontaneous
  Country: AU (occurrence: AU)
  Receive Date: 20210128
  Receipt Date: 20210128
  Transmission Date: 20210419
  Serious: Yes (Other)
  Sender: FDA-Public Use
  Company Number: AU-JNJFOC-20210136269

PATIENT
  Age: 30 Year
  Sex: Male

DRUGS (14)
  1. MYCOPHENOLATE MOFETIL. [Suspect]
     Active Substance: MYCOPHENOLATE MOFETIL
     Indication: SUSAC^S SYNDROME
     Route: 065
  2. CYCLOPHOSPHAMIDE. [Concomitant]
     Active Substance: CYCLOPHOSPHAMIDE
     Indication: SUSAC^S SYNDROME
     Route: 042
  3. PREDNISOLONE. [Concomitant]
     Active Substance: PREDNISOLONE
     Route: 048
  4. RISEDRONATE [Concomitant]
     Active Substance: RISEDRONATE SODIUM
     Indication: PROPHYLAXIS
  5. RITUXIMAB. [Concomitant]
     Active Substance: RITUXIMAB
     Indication: SUSAC^S SYNDROME
  6. PREDNISOLONE. [Concomitant]
     Active Substance: PREDNISOLONE
     Route: 048
  7. PREDNISONE. [Concomitant]
     Active Substance: PREDNISONE
     Indication: SUSAC^S SYNDROME
  8. ASPRIN [Concomitant]
     Active Substance: ASPIRIN
     Indication: VASCULAR DISORDER PROPHYLAXIS
  9. METHYLPREDNISOLONE. [Concomitant]
     Active Substance: METHYLPREDNISOLONE
     Indication: SUSAC^S SYNDROME
     Route: 042
  10. METHYLPREDNISOLONE. [Concomitant]
     Active Substance: METHYLPREDNISOLONE
     Route: 042
  11. METHYLPREDNISOLONE. [Concomitant]
     Active Substance: METHYLPREDNISOLONE
     Route: 042
  12. COTRIMOXAZOLE [Concomitant]
     Active Substance: SULFAMETHOXAZOLE\TRIMETHOPRIM
     Indication: ANTIFUNGAL PROPHYLAXIS
  13. PREDNISOLONE. [Concomitant]
     Active Substance: PREDNISOLONE
     Indication: SUSAC^S SYNDROME
     Route: 048
  14. INFLIXIMAB, RECOMBINANT [Suspect]
     Active Substance: INFLIXIMAB
     Indication: SUSAC^S SYNDROME
     Route: 042

REACTIONS (3)
  - Immunosuppression [Unknown]
  - Product used for unknown indication [Unknown]
  - Off label use [Unknown]
